FAERS Safety Report 7487461-9 (Version None)
Quarter: 2011Q2

REPORT INFORMATION
  Report Type: 
  Country: None (occurrence: None)
  Receive Date: 20110510
  Receipt Date: 20110427
  Transmission Date: 20111010
  Serious: Yes (Hospitalization)
  Sender: FDA-Public Use
  Company Number: 2011090459

PATIENT
  Age: 63 Year
  Sex: Female

DRUGS (5)
  1. RAMIPRIL [Concomitant]
  2. CYCLIZINE (CYCLIZINE) [Concomitant]
  3. DICLOFENAC SODIUM [Concomitant]
  4. DALTEPARIN SODIUM [Suspect]
     Indication: LUNG NEOPLASM MALIGNANT
     Dates: start: 20101217
  5. ORAMORPH SR [Concomitant]

REACTIONS (4)
  - AMNESIA [None]
  - FALL [None]
  - CONFUSIONAL STATE [None]
  - SOMNOLENCE [None]
